FAERS Safety Report 5313186-1 (Version None)
Quarter: 2007Q2

REPORT INFORMATION
  Report Type: 
  Country: None (occurrence: None)
  Receive Date: 20070424
  Receipt Date: 20070413
  Transmission Date: 20071010
  Serious: Yes (Other)
  Sender: FDA-Public Use
  Company Number: GXKR2007GB03478

PATIENT
  Age: 82 Year
  Sex: Male

DRUGS (1)
  1. TRIAMCINOLONE DIACETATE [Suspect]
     Indication: MACULAR OEDEMA
     Dosage: INJECTION NOS

REACTIONS (4)
  - CATARACT [None]
  - CATARACT SUBCAPSULAR [None]
  - INCORRECT ROUTE OF DRUG ADMINISTRATION [None]
  - INTRAOCULAR PRESSURE INCREASED [None]
